FAERS Safety Report 15662757 (Version 3)
Quarter: 2020Q3

REPORT INFORMATION
  Report Type: Spontaneous
  Country: US (occurrence: US)
  Receive Date: 20181127
  Receipt Date: 20200717
  Transmission Date: 20201102
  Serious: Yes (Other)
  Sender: FDA-Public Use
  Company Number: US-SA-2018SA168131

PATIENT

DRUGS (21)
  1. ADRIAMYCIN [Concomitant]
     Active Substance: DOXORUBICIN HYDROCHLORIDE
     Indication: BREAST CANCER FEMALE
     Dosage: 107 MG
     Route: 042
     Dates: start: 20160219
  2. DECADRON [Concomitant]
     Active Substance: DEXAMETHASONE
     Dosage: 12 MG
     Route: 048
     Dates: start: 20160219
  3. ZANTAC [Concomitant]
     Active Substance: RANITIDINE HYDROCHLORIDE
     Dosage: 150 MG
     Route: 048
     Dates: start: 20160318
  4. TAXOTERE [Suspect]
     Active Substance: DOCETAXEL
     Indication: BREAST CANCER FEMALE
     Dosage: 134 MG, QCY
     Route: 042
     Dates: start: 20160318, end: 20160318
  5. ATIVAN [Concomitant]
     Active Substance: LORAZEPAM
     Dosage: 0.5 MG
     Route: 048
     Dates: start: 20160219
  6. PERJETA [Concomitant]
     Active Substance: PERTUZUMAB
     Dosage: 840 MG
     Route: 042
     Dates: start: 20160318
  7. PEPCID [Concomitant]
     Active Substance: FAMOTIDINE
     Dosage: 20 MG
     Dates: start: 20160219
  8. HEPARIN [Concomitant]
     Active Substance: HEPARIN SODIUM
     Dosage: UNK
     Dates: start: 20160219
  9. PERCOCET [OXYCODONE HYDROCHLORIDE;OXYCODONE TEREPHTHALATE;PARACETAMOL] [Concomitant]
     Active Substance: ACETAMINOPHEN\OXYCODONE HYDROCHLORIDE\OXYCODONE TEREPHTHALATE
     Dosage: 1 DF
     Route: 048
     Dates: start: 20160219
  10. DEXTROSE. [Concomitant]
     Active Substance: DEXTROSE
     Dosage: 649.8 MG
     Route: 042
     Dates: start: 20160318
  11. NERLYNX [Concomitant]
     Active Substance: NERATINIB
     Indication: BREAST CANCER FEMALE
  12. EMEND [FOSAPREPITANT MEGLUMINE] [Concomitant]
     Dosage: UNK
     Dates: start: 20160219
  13. SOLU?CORTEF [Concomitant]
     Active Substance: HYDROCORTISONE SODIUM SUCCINATE
     Route: 042
  14. ALOXI [Concomitant]
     Active Substance: PALONOSETRON HYDROCHLORIDE
     Dosage: 0.25 MG
     Route: 042
     Dates: start: 20160318
  15. HERCEPTIN [Concomitant]
     Active Substance: TRASTUZUMAB
     Dosage: 200 MG
     Route: 042
     Dates: start: 20160318
  16. BENADRYL [Concomitant]
     Active Substance: DIPHENHYDRAMINE HYDROCHLORIDE
     Dosage: 50 MG
     Dates: start: 20160219
  17. PARAPLATIN [Concomitant]
     Active Substance: CARBOPLATIN
     Dosage: 649.8 MG
     Route: 042
     Dates: start: 20160318
  18. TAXOTERE [Suspect]
     Active Substance: DOCETAXEL
     Dosage: 134 MG, QCY
     Route: 042
     Dates: start: 20160408, end: 20160408
  19. BENADRYL [Concomitant]
     Active Substance: DIPHENHYDRAMINE HYDROCHLORIDE
     Dosage: 25 MG
     Route: 048
     Dates: start: 20160219
  20. COMPAZINE [Concomitant]
     Active Substance: PROCHLORPERAZINE MALEATE
     Dosage: UNK UNK, PRN
     Dates: start: 20160219
  21. ALOXI [Concomitant]
     Active Substance: PALONOSETRON HYDROCHLORIDE
     Dosage: 0.25 MG
     Route: 042
     Dates: start: 20160219

REACTIONS (3)
  - Emotional distress [Unknown]
  - Psychological trauma [Unknown]
  - Alopecia [Recovering/Resolving]

NARRATIVE: CASE EVENT DATE: 2016
